FAERS Safety Report 8315015-0 (Version None)
Quarter: 2012Q2

REPORT INFORMATION
  Report Type: 
  Country: None (occurrence: None)
  Receive Date: 20120426
  Receipt Date: 20120323
  Transmission Date: 20120825
  Serious: No
  Sender: FDA-Public Use
  Company Number: US-MUTUAL PHARMACEUTICAL COMPANY, INC.-CLCY20120050

PATIENT
  Sex: Male
  Weight: 72.64 kg

DRUGS (7)
  1. COLCRYS [Suspect]
     Route: 048
     Dates: start: 20110101, end: 20110101
  2. COLCRYS [Suspect]
     Indication: GOUT
     Route: 048
     Dates: start: 20110301, end: 20120320
  3. LISINOPRIL [Concomitant]
     Indication: HYPERTENSION
     Route: 048
  4. OMEPRAZOLE [Concomitant]
     Indication: GASTROOESOPHAGEAL REFLUX DISEASE
     Route: 048
  5. PREDNISONE TAB [Concomitant]
     Indication: GOUT
     Route: 048
  6. METOPROLOL SUCCINATE [Concomitant]
     Indication: HYPERTENSION
     Route: 048
  7. TAMSULOSIN HCL [Concomitant]
     Indication: PROSTATE CANCER
     Route: 048

REACTIONS (7)
  - DYSPNOEA [None]
  - BREATH SOUNDS ABNORMAL [None]
  - BACK PAIN [None]
  - INCREASED UPPER AIRWAY SECRETION [None]
  - DRUG INEFFECTIVE [None]
  - WHEEZING [None]
  - NON-CARDIAC CHEST PAIN [None]
